FAERS Safety Report 6952541-0 (Version None)
Quarter: 2010Q3

REPORT INFORMATION
  Report Type: 
  Country: None (occurrence: None)
  Receive Date: 20100829
  Receipt Date: 20100507
  Transmission Date: 20110219
  Serious: No
  Sender: FDA-Public Use
  Company Number: US-ABBOTT-10P-163-0642910-00

PATIENT
  Sex: Female
  Weight: 118.04 kg

DRUGS (1)
  1. NIASPAN [Suspect]
     Indication: LOW DENSITY LIPOPROTEIN INCREASED
     Dosage: AT BEDTIME

REACTIONS (4)
  - BLOOD URINE PRESENT [None]
  - INTESTINAL HAEMORRHAGE [None]
  - OVARIAN MASS [None]
  - RENAL MASS [None]
